FAERS Safety Report 18388735 (Version 1)
Quarter: 2020Q4

REPORT INFORMATION
  Report Type: Other
  Country: US (occurrence: US)
  Receive Date: 20201015
  Receipt Date: 20201015
  Transmission Date: 20210114
  Serious: Yes (Hospitalization)
  Sender: FDA-Public Use
  Company Number: US-KALEO, INC.-2020KL000107

PATIENT
  Age: 25 Month
  Sex: Female

DRUGS (2)
  1. AUVI-Q [Suspect]
     Active Substance: EPINEPHRINE
     Indication: ANAPHYLACTIC REACTION
     Route: 030
  2. AUVI-Q [Suspect]
     Active Substance: EPINEPHRINE
     Route: 042

REACTIONS (1)
  - Hypotension [Recovered/Resolved]
